FAERS Safety Report 5030646-1 (Version None)
Quarter: 2006Q2

REPORT INFORMATION
  Report Type: 
  Country: None (occurrence: None)
  Receive Date: 20060615
  Receipt Date: 20060530
  Transmission Date: 20061013
  Serious: Yes (Hospitalization)
  Sender: FDA-Public Use
  Company Number: DSA_28254_2006

PATIENT
  Age: 62 Year
  Sex: Female
  Weight: 61.6892 kg

DRUGS (7)
  1. ATIVAN [Suspect]
     Indication: INSOMNIA
     Dosage: 1 MG Q DAY PO
     Route: 048
     Dates: start: 20060101
  2. ATIVAN [Suspect]
     Indication: INSOMNIA
     Dosage: 4 MG Q DAY PO
     Route: 048
     Dates: start: 20060321, end: 20060101
  3. ATIVAN [Suspect]
     Indication: INSOMNIA
     Dosage: DF Q DAY PO
     Route: 048
     Dates: end: 20060320
  4. XYREM [Suspect]
     Indication: INSOMNIA
     Dosage: 2.25 G 2XNIGHT PO
     Route: 048
     Dates: start: 20060321, end: 20060413
  5. XYREM [Suspect]
     Indication: INSOMNIA
     Dosage: 2.25 G 2XNIGHT PO
     Route: 048
     Dates: start: 20060416, end: 20060418
  6. AVAPRO [Concomitant]
  7. FELODIPINE [Concomitant]

REACTIONS (6)
  - ANXIETY [None]
  - BLOOD PRESSURE INCREASED [None]
  - BODY TEMPERATURE INCREASED [None]
  - CONFUSIONAL STATE [None]
  - HEART RATE INCREASED [None]
  - NERVOUSNESS [None]
